FAERS Safety Report 7602766-6 (Version None)
Quarter: 2011Q3

REPORT INFORMATION
  Report Type: 
  Country: None (occurrence: None)
  Receive Date: 20110705
  Receipt Date: 20110705
  Transmission Date: 20111222
  Serious: Yes (Hospitalization)
  Sender: FDA-Public Use
  Company Number: None

PATIENT
  Age: 48 Year
  Sex: Male
  Weight: 95.2554 kg

DRUGS (6)
  1. CYCLOBENAZPRINE [Concomitant]
  2. RANITIDINE [Concomitant]
  3. LURASIDONE HYDROCHLORIDE [Suspect]
     Indication: SCHIZOPHRENIA
     Dosage: 40MG ORAL
     Route: 048
     Dates: start: 20110405
  4. GABAPENTIN [Concomitant]
  5. METFORMIN HCL [Concomitant]
  6. ROSUVASTATIN [Concomitant]

REACTIONS (2)
  - DYSPNOEA [None]
  - CHEST PAIN [None]
